FAERS Safety Report 10713848 (Version 3)
Quarter: 2015Q4

REPORT INFORMATION
  Report Type: Spontaneous
  Country: US (occurrence: US)
  Receive Date: 20150115
  Receipt Date: 20151106
  Transmission Date: 20160304
  Serious: No
  Sender: FDA-Public Use
  Company Number: US-PFIZER INC-2015015284

PATIENT
  Age: 78 Year
  Sex: Female
  Weight: 77 kg

DRUGS (3)
  1. METFORMIN [Concomitant]
     Active Substance: METFORMIN HYDROCHLORIDE
     Indication: DIABETES MELLITUS
     Dosage: UNK
  2. GLYBURIDE. [Concomitant]
     Active Substance: GLYBURIDE
     Indication: DIABETES MELLITUS
     Dosage: UNK
  3. LYRICA [Suspect]
     Active Substance: PREGABALIN
     Indication: NEUROPATHY PERIPHERAL
     Dosage: 50 MG, 3X/DAY
     Dates: start: 2014

REACTIONS (5)
  - Pain in extremity [Not Recovered/Not Resolved]
  - Product label issue [Not Recovered/Not Resolved]
  - Insomnia [Unknown]
  - Pruritus [Not Recovered/Not Resolved]
  - Ear disorder [Unknown]

NARRATIVE: CASE EVENT DATE: 20150111
